FAERS Safety Report 21222119 (Version 1)
Quarter: 2022Q3

REPORT INFORMATION
  Report Type: Report from Study
  Country: US (occurrence: US)
  Receive Date: 20220817
  Receipt Date: 20220817
  Transmission Date: 20221026
  Serious: Yes (Other)
  Sender: FDA-Public Use
  Company Number: US-SAMOHPHARM-2022003729

PATIENT

DRUGS (1)
  1. CARBAGLU [Suspect]
     Active Substance: CARGLUMIC ACID
     Indication: Urea cycle disorder
     Dosage: 800 MILLIGRAM, BID
     Route: 048

REACTIONS (4)
  - Diabetes mellitus [Unknown]
  - Gastrointestinal disorder [Unknown]
  - Hernia pain [Unknown]
  - Dyspepsia [Unknown]
